FAERS Safety Report 19998666 (Version 1)
Quarter: 2021Q4

REPORT INFORMATION
  Report Type: Spontaneous
  Country: US (occurrence: US)
  Receive Date: 20211026
  Receipt Date: 20211026
  Transmission Date: 20220303
  Serious: Yes (Other)
  Sender: FDA-Public Use
  Company Number: US-GLAXOSMITHKLINE-US2021GSK222255

PATIENT
  Sex: Male

DRUGS (3)
  1. RANITIDINE [Suspect]
     Active Substance: RANITIDINE
     Indication: Abdominal discomfort
     Dosage: 150 MG, QD
     Route: 065
     Dates: start: 199710, end: 201801
  2. ZANTAC [Suspect]
     Active Substance: RANITIDINE HYDROCHLORIDE
     Indication: Abdominal discomfort
     Dosage: UNK, QD
     Route: 065
     Dates: start: 199710, end: 201801
  3. RANITIDINE [Suspect]
     Active Substance: RANITIDINE
     Indication: Abdominal discomfort
     Dosage: 150 MG, QD
     Route: 065
     Dates: start: 199710, end: 201801

REACTIONS (2)
  - Prostate cancer [Unknown]
  - Skin cancer [Unknown]
